FAERS Safety Report 6013353-8 (Version None)
Quarter: 2008Q4

REPORT INFORMATION
  Report Type: 
  Country: None (occurrence: None)
  Receive Date: 20081219
  Receipt Date: 20081210
  Transmission Date: 20090506
  Serious: Yes (Hospitalization, Other)
  Sender: FDA-Public Use
  Company Number: US-AMGEN-QUU323381

PATIENT
  Sex: Female

DRUGS (2)
  1. ENBREL [Suspect]
     Indication: RHEUMATOID ARTHRITIS
     Route: 058
     Dates: start: 20000101
  2. IMURAN [Concomitant]

REACTIONS (7)
  - ARTHRITIS [None]
  - ARTHRITIS INFECTIVE [None]
  - BONE GRAFT [None]
  - JOINT RANGE OF MOTION DECREASED [None]
  - OPEN WOUND [None]
  - PNEUMONIA [None]
  - STENOTROPHOMONAS INFECTION [None]
